FAERS Safety Report 4300725-2 (Version None)
Quarter: 2004Q1

REPORT INFORMATION
  Report Type: 
  Country: None (occurrence: None)
  Receive Date: 20040218
  Receipt Date: 20040209
  Transmission Date: 20041129
  Serious: Yes (Other)
  Sender: FDA-Public Use
  Company Number: US-JNJFOC-20040202419

PATIENT
  Age: 42 Year
  Sex: Female
  Weight: 56.6996 kg

DRUGS (13)
  1. TOPAMAX [Suspect]
     Indication: HEADACHE
     Dosage: 50 MG, 2 IN 1 DAY, ORAL
     Route: 048
  2. WELLBUTRIN [Suspect]
     Indication: EX-SMOKER
  3. FLOMAX [Concomitant]
  4. CELEXA [Concomitant]
  5. AMANTADINE HCL [Concomitant]
  6. PROTONIX [Concomitant]
  7. LIPZTOR (ATORVASTATIN) [Concomitant]
  8. ATENOLOL [Concomitant]
  9. LISINOPRIL [Concomitant]
  10. IMDUR [Concomitant]
  11. ULTRACET (TRAMADOL/APAP) [Concomitant]
  12. CELEBREX [Concomitant]
  13. NITROQUIK (GLYCERYL TRINITRATE) [Concomitant]

REACTIONS (2)
  - CEREBROVASCULAR ACCIDENT [None]
  - MYOCARDIAL INFARCTION [None]
